FAERS Safety Report 4463303-0 (Version None)
Quarter: 2004Q3

REPORT INFORMATION
  Report Type: 
  Country: None (occurrence: None)
  Receive Date: 20040930
  Receipt Date: 20040719
  Transmission Date: 20050211
  Serious: Yes (Hospitalization)
  Sender: FDA-Public Use
  Company Number: US-BRISTOL-MYERS SQUIBB COMPANY-12644571

PATIENT
  Age: 72 Year
  Sex: Female

DRUGS (5)
  1. REYATAZ [Suspect]
     Indication: HIV INFECTION
     Route: 048
  2. VIREAD [Concomitant]
     Dosage: ONCE DAILY
  3. EPIVIR [Concomitant]
     Dosage: ONCE DAILY
  4. RITONAVIR [Concomitant]
     Dosage: ONCE DAILY
  5. ZIAGEN [Concomitant]
     Dosage: ONCE DAILY

REACTIONS (1)
  - ATRIOVENTRICULAR BLOCK [None]
